FAERS Safety Report 9102878 (Version 5)
Quarter: 2013Q2

REPORT INFORMATION
  Report Type: Spontaneous
  Country: JP (occurrence: JP)
  Receive Date: 20130218
  Receipt Date: 20130409
  Transmission Date: 20140414
  Serious: Yes (Death, Hospitalization)
  Sender: FDA-Public Use
  Company Number: JP-JNJFOC-20130203999

PATIENT
  Age: 57 Year
  Sex: Male
  Weight: 64 kg

DRUGS (17)
  1. HALOMONTH [Suspect]
     Indication: SCHIZOPHRENIA
     Route: 030
     Dates: start: 20121203, end: 20121203
  2. ZYPREXA [Suspect]
     Indication: SCHIZOPHRENIA
     Route: 048
     Dates: start: 20121219, end: 20121220
  3. UNKNOWN MEDICATION [Suspect]
     Indication: SCHIZOPHRENIA
     Route: 030
     Dates: start: 20121217, end: 20121218
  4. OLANZAPINE [Suspect]
     Indication: SCHIZOPHRENIA
     Dosage: 20 MG PER DAY
     Route: 030
     Dates: start: 20121217, end: 20121218
  5. ABILIFY [Concomitant]
     Indication: SCHIZOPHRENIA
     Route: 048
     Dates: start: 20121222, end: 20121222
  6. ABILIFY [Concomitant]
     Indication: SCHIZOPHRENIA
     Route: 048
     Dates: start: 20121222, end: 20121222
  7. ABILIFY [Concomitant]
     Indication: SCHIZOPHRENIA
     Route: 048
     Dates: start: 20121219, end: 20121221
  8. SERENACE [Concomitant]
     Indication: SCHIZOPHRENIA
     Route: 030
  9. SERENACE [Concomitant]
     Indication: SCHIZOPHRENIA
     Route: 030
     Dates: start: 20121221, end: 20121221
  10. SERENACE [Concomitant]
     Indication: SCHIZOPHRENIA
     Route: 048
     Dates: start: 20121214, end: 20121220
  11. ROHYPNOL [Concomitant]
     Indication: PSYCHOMOTOR HYPERACTIVITY
     Route: 042
     Dates: start: 20121213, end: 20121213
  12. LUNESTA [Concomitant]
     Indication: PROPHYLAXIS
     Route: 048
     Dates: start: 20121214, end: 20121221
  13. AKINETON [Concomitant]
     Indication: TREMOR
     Route: 048
     Dates: start: 20121221, end: 20121222
  14. AKINETON [Concomitant]
     Indication: SALIVARY HYPERSECRETION
     Route: 048
     Dates: start: 20121221, end: 20121222
  15. AKINETON [Concomitant]
     Indication: TREMOR
     Route: 030
     Dates: start: 20121221, end: 20121221
  16. AKINETON [Concomitant]
     Indication: SALIVARY HYPERSECRETION
     Route: 030
     Dates: start: 20121221, end: 20121221
  17. LACTATED RINGER^S SOLUTION [Concomitant]
     Indication: MEDICAL DEVICE COMPLICATION
     Route: 041
     Dates: start: 20121221, end: 20121222

REACTIONS (4)
  - Cardiac failure acute [Fatal]
  - Respiratory failure [Fatal]
  - Blood prolactin increased [Not Recovered/Not Resolved]
  - Blood glucose increased [Not Recovered/Not Resolved]
